FAERS Safety Report 4689151-4 (Version None)
Quarter: 2005Q2

REPORT INFORMATION
  Report Type: 
  Country: None (occurrence: None)
  Receive Date: 20050613
  Receipt Date: 20050411
  Transmission Date: 20051028
  Serious: Yes (Death)
  Sender: FDA-Public Use
  Company Number: 2005UW05585

PATIENT
  Age: 30 Year
  Sex: Male

DRUGS (7)
  1. SEROQUEL [Suspect]
     Indication: BIPOLAR DISORDER
     Dosage: LOW DOSE
     Route: 048
     Dates: start: 20041101
  2. SEROQUEL [Suspect]
     Dosage: 300 QAM, 500 QHS
     Route: 048
     Dates: start: 20041101
  3. DEPAKOTE [Concomitant]
     Indication: BIPOLAR DISORDER
     Route: 048
  4. LITHIUM [Concomitant]
     Indication: BIPOLAR DISORDER
     Route: 048
     Dates: start: 20041101
  5. ATIVAN [Concomitant]
     Indication: AGITATION
     Route: 048
     Dates: start: 20041101
  6. ABILIFY [Concomitant]
     Route: 048
  7. KLONOPIN [Concomitant]

REACTIONS (13)
  - ABDOMINAL PAIN [None]
  - ANTIPSYCHOTIC DRUG LEVEL ABOVE THERAPEUTIC [None]
  - APNOEA [None]
  - CARDIAC ARREST [None]
  - CONSTIPATION [None]
  - DRUG INEFFECTIVE [None]
  - DRUG TOXICITY [None]
  - FALL [None]
  - LOSS OF CONSCIOUSNESS [None]
  - PULSE ABSENT [None]
  - RESPIRATORY ARREST [None]
  - VENTRICULAR EXTRASYSTOLES [None]
  - VOMITING [None]
